FAERS Safety Report 21157671 (Version 1)
Quarter: 2022Q3

REPORT INFORMATION
  Report Type: Spontaneous
  Country: CA (occurrence: CA)
  Receive Date: 20220801
  Receipt Date: 20220801
  Transmission Date: 20221027
  Serious: Yes (Hospitalization, Other)
  Sender: FDA-Public Use
  Company Number: CA-MYLANLABS-2022M1082762

PATIENT
  Age: 60 Year
  Sex: Male

DRUGS (11)
  1. CLOZAPINE [Interacting]
     Active Substance: CLOZAPINE
     Indication: Psychotic disorder
     Dosage: 150 MILLIGRAM, QD
     Route: 065
  2. CLOZAPINE [Interacting]
     Active Substance: CLOZAPINE
     Indication: Psychotic disorder
     Dosage: 625 MILLIGRAM, QD
     Route: 065
  3. VALPROIC ACID [Interacting]
     Active Substance: VALPROIC ACID
     Indication: Schizoaffective disorder bipolar type
     Dosage: 1500 MILLIGRAM
     Route: 065
  4. ZOPICLONE [Interacting]
     Active Substance: ZOPICLONE
     Indication: Psychotic disorder
     Dosage: 15 MILLIGRAM
     Route: 065
  5. FLUVOXAMINE [Interacting]
     Active Substance: FLUVOXAMINE
     Indication: Psychotic disorder
     Dosage: 200 MILLIGRAM
     Route: 065
  6. FLUOXETINE [Interacting]
     Active Substance: FLUOXETINE HYDROCHLORIDE
     Indication: Obsessive-compulsive disorder
     Dosage: 60 MILLIGRAM
     Route: 065
  7. ZUCLOPENTHIXOL DECANOATE [Interacting]
     Active Substance: ZUCLOPENTHIXOL DECANOATE
     Indication: Schizoaffective disorder bipolar type
     Dosage: 450 MILLIGRAM, QW
     Route: 065
  8. PROCYCLIDINE [Interacting]
     Active Substance: PROCYCLIDINE
     Indication: Schizoaffective disorder bipolar type
     Dosage: UNK
     Route: 065
  9. OXAZEPAM [Interacting]
     Active Substance: OXAZEPAM
     Indication: Psychotic disorder
     Dosage: 20 MILLIGRAM
     Route: 065
  10. BUSPIRONE [Interacting]
     Active Substance: BUSPIRONE HYDROCHLORIDE
     Indication: Psychotic disorder
     Dosage: 60 MILLIGRAM
     Route: 065
  11. QUETIAPINE [Concomitant]
     Active Substance: QUETIAPINE
     Indication: Schizoaffective disorder bipolar type
     Dosage: UNK
     Route: 065

REACTIONS (8)
  - Aggression [Unknown]
  - Drug level increased [Unknown]
  - Tardive dyskinesia [Unknown]
  - Obesity [Unknown]
  - Orthostatic hypotension [Unknown]
  - Sedation [Unknown]
  - Irritability [Unknown]
  - Drug interaction [Unknown]
